FAERS Safety Report 5503721-2 (Version None)
Quarter: 2007Q4

REPORT INFORMATION
  Report Type: 
  Country: None (occurrence: None)
  Receive Date: 20071101
  Receipt Date: 20071031
  Transmission Date: 20080405
  Serious: Yes (Life-Threatening, Hospitalization)
  Sender: FDA-Public Use
  Company Number: FR-JNJFOC-20071007782

PATIENT
  Sex: Male

DRUGS (6)
  1. RISPERDAL [Suspect]
     Indication: DRUG USE FOR UNKNOWN INDICATION
     Route: 048
  2. TERCIAN [Suspect]
     Indication: DRUG USE FOR UNKNOWN INDICATION
     Dosage: 25 MG IN THE MORNING AND 100 MG IN THE EVENING
     Route: 048
  3. MEPRONIZINE [Suspect]
     Indication: DRUG USE FOR UNKNOWN INDICATION
     Route: 048
  4. CIFLOX [Concomitant]
     Indication: RESPIRATORY TRACT CONGESTION
     Route: 048
  5. DEPAKOTE [Concomitant]
     Indication: DRUG USE FOR UNKNOWN INDICATION
     Route: 048
  6. LASIX [Concomitant]
     Indication: DRUG USE FOR UNKNOWN INDICATION
     Route: 048

REACTIONS (3)
  - ACIDOSIS [None]
  - HYPERCAPNIA [None]
  - RESPIRATORY DISTRESS [None]
